FAERS Safety Report 5500050-8 (Version None)
Quarter: 2007Q4

REPORT INFORMATION
  Report Type: 
  Country: None (occurrence: None)
  Receive Date: 20071024
  Receipt Date: 20071009
  Transmission Date: 20080405
  Serious: Yes (Disabling)
  Sender: FDA-Public Use
  Company Number: S07-FRA-05540-01

PATIENT
  Age: 77 Year
  Sex: Male

DRUGS (3)
  1. SEROPLEX (ESCITALOPRAM) [Suspect]
     Dosage: 20 MG QD PO
     Route: 048
  2. MYSOLINE [Concomitant]
  3. ANTIHYPERTENSIVE DRUGS [Concomitant]

REACTIONS (3)
  - CONDITION AGGRAVATED [None]
  - SLEEP DISORDER [None]
  - TREMOR [None]
